FAERS Safety Report 6798331-3 (Version None)
Quarter: 2010Q2

REPORT INFORMATION
  Report Type: 
  Country: None (occurrence: None)
  Receive Date: 20100623
  Receipt Date: 20100609
  Transmission Date: 20101027
  Serious: Yes (Life-Threatening, Other)
  Sender: FDA-Public Use
  Company Number: 1000014592

PATIENT
  Age: 31 Year
  Sex: Female
  Weight: 60 kg

DRUGS (7)
  1. CITALOPRAM HYDROBROMIDE [Suspect]
     Dosage: ONCE, ORAL
     Route: 048
     Dates: start: 20100608, end: 20100608
  2. SEROQUEL [Suspect]
     Dosage: ONCE, ORAL
     Route: 048
     Dates: start: 20100608, end: 20100608
  3. ACETAMINOPHEN [Suspect]
     Dosage: ONCE, ORAL
     Route: 048
     Dates: start: 20100608, end: 20100608
  4. HOGGAR NIGHT [Suspect]
     Dosage: ONCE, ORAL
     Route: 048
     Dates: start: 20100608, end: 20100608
  5. HOGGAR BALANCE [Suspect]
     Dosage: ONCE, ORAL
     Route: 048
     Dates: start: 20100608, end: 20100608
  6. BALDRAIN [Suspect]
     Dosage: ONCE, ORAL
     Route: 048
     Dates: start: 20100608, end: 20100608
  7. ALCOHOL [Suspect]
     Dosage: ONCE, ORAL
     Route: 048
     Dates: start: 20100608, end: 20100608

REACTIONS (6)
  - ALCOHOL USE [None]
  - BLOOD CREATINE PHOSPHOKINASE INCREASED [None]
  - HYPOTENSION [None]
  - MULTIPLE DRUG OVERDOSE INTENTIONAL [None]
  - SOMNOLENCE [None]
  - SUICIDE ATTEMPT [None]
